FAERS Safety Report 23009757 (Version 3)
Quarter: 2023Q4

REPORT INFORMATION
  Report Type: Report from Study
  Country: BR (occurrence: BR)
  Receive Date: 20230929
  Receipt Date: 20231125
  Transmission Date: 20240110
  Serious: Yes (Hospitalization)
  Sender: FDA-Public Use
  Company Number: BR-002147023-NVSC2023BR208867

PATIENT
  Sex: Male

DRUGS (1)
  1. AMLODIPINE\VALSARTAN [Suspect]
     Active Substance: AMLODIPINE\VALSARTAN
     Indication: Product used for unknown indication
     Dosage: UNK (STRENGTH: 160 PLUS 10)
     Route: 065

REACTIONS (6)
  - Renal aneurysm [Unknown]
  - Cardiac disorder [Unknown]
  - Blood pressure increased [Unknown]
  - Nervousness [Unknown]
  - Irritability [Unknown]
  - Fear of disease [Unknown]
